FAERS Safety Report 19532726 (Version 1)
Quarter: 2021Q3

REPORT INFORMATION
  Report Type: Spontaneous
  Country: US (occurrence: US)
  Receive Date: 20210713
  Receipt Date: 20210713
  Transmission Date: 20211014
  Serious: Yes (Other)
  Sender: FDA-Public Use
  Company Number: US-SA-2021SA101175

PATIENT
  Age: 59 Year
  Sex: Male

DRUGS (2)
  1. DUPIXENT [Suspect]
     Active Substance: DUPILUMAB
     Dosage: 300 MG, QOW
     Route: 058
     Dates: start: 20210401, end: 20210707
  2. DUPIXENT [Suspect]
     Active Substance: DUPILUMAB
     Indication: DERMATITIS ATOPIC
     Dosage: 600 MG, 1X
     Route: 058
     Dates: start: 20210318, end: 20210318

REACTIONS (8)
  - Speech disorder [Unknown]
  - Swollen tongue [Unknown]
  - Erythema of eyelid [Unknown]
  - Macular degeneration [Unknown]
  - Musculoskeletal stiffness [Unknown]
  - Acne [Unknown]
  - Skin exfoliation [Not Recovered/Not Resolved]
  - Tongue discomfort [Unknown]

NARRATIVE: CASE EVENT DATE: 2021
